FAERS Safety Report 4385721-1 (Version None)
Quarter: 2004Q2

REPORT INFORMATION
  Report Type: 
  Country: None (occurrence: None)
  Receive Date: 20040623
  Receipt Date: 20040604
  Transmission Date: 20050107
  Serious: Yes (Death)
  Sender: FDA-Public Use
  Company Number: JP_040302868

PATIENT
  Age: 45 Year
  Sex: Male
  Weight: 72 kg

DRUGS (10)
  1. HUMALOG [Suspect]
     Indication: DIABETES MELLITUS NON-INSULIN-DEPENDENT
     Dosage: 4 U DAY
     Dates: start: 20040105
  2. LASIX [Concomitant]
  3. CARVEDILOL [Concomitant]
  4. DIOVAN [Concomitant]
  5. BUFFERIN [Concomitant]
  6. LIPITOR [Concomitant]
  7. ALLOPURINOL [Concomitant]
  8. ISOSORBIDE DINITRATE [Concomitant]
  9. FERROMIA (FERROUS CITRATE) [Concomitant]
  10. HUMULIN 30/70 (INSULIN HUMAN INJECTION, ISOPHANE) [Concomitant]

REACTIONS (1)
  - DEATH [None]
